FAERS Safety Report 4278469-5 (Version None)
Quarter: 2004Q1

REPORT INFORMATION
  Report Type: 
  Country: None (occurrence: None)
  Receive Date: 20040123
  Receipt Date: 20040115
  Transmission Date: 20041129
  Serious: Yes (Other)
  Sender: FDA-Public Use
  Company Number: WAES 0401USA01233

PATIENT
  Age: 47 Year
  Sex: Male

DRUGS (1)
  1. CUPRIMINE [Suspect]
     Indication: HEPATO-LENTICULAR DEGENERATION
     Route: 048

REACTIONS (1)
  - PSEUDOXANTHOMA ELASTICUM [None]
